FAERS Safety Report 7443817-1 (Version None)
Quarter: 2011Q2

REPORT INFORMATION
  Report Type: 
  Country: None (occurrence: None)
  Receive Date: 20110428
  Receipt Date: 20110425
  Transmission Date: 20111010
  Serious: Yes (Other)
  Sender: FDA-Public Use
  Company Number: JP-BAYER-2011-035251

PATIENT
  Age: 67 Year
  Sex: Female
  Weight: 65 kg

DRUGS (4)
  1. NOVORAPID [Concomitant]
     Dosage: DAILY DOSE 10 U
     Route: 058
     Dates: start: 20100125
  2. SORAFENIB (RAF KINASE INHIBITOR) [Suspect]
     Indication: HEPATIC NEOPLASM MALIGNANT
     Dosage: DAILY DOSE 400 MG
     Route: 048
     Dates: start: 20101124, end: 20101217
  3. LIVACT [Concomitant]
     Dosage: DAILY DOSE 12.75 G
     Route: 048
     Dates: start: 20091209
  4. MAGLAX [Concomitant]
     Dosage: DAILY DOSE 990 MG
     Route: 048
     Dates: start: 20091209

REACTIONS (4)
  - HEPATIC ENCEPHALOPATHY [None]
  - DYSPHONIA [None]
  - HYPERTENSION [None]
  - PLATELET COUNT DECREASED [None]
